FAERS Safety Report 8876621 (Version 1)
Quarter: 2012Q4

REPORT INFORMATION
  Report Type: 
  Country: US (occurrence: US)
  Receive Date: 20121029
  Receipt Date: 20121029
  Transmission Date: 20130627
  Serious: No
  Sender: FDA-Public Use
  Company Number: US-009507513-1210USA009406

PATIENT
  Sex: Female

DRUGS (3)
  1. COSOPT [Suspect]
     Indication: GLAUCOMA
     Dosage: 2 Gtt, qam
     Route: 047
     Dates: end: 201207
  2. COSOPT [Suspect]
     Dosage: 2 Gtt, hs
     Route: 047
     Dates: end: 201207
  3. AZOPT [Concomitant]

REACTIONS (1)
  - Eye irritation [Recovered/Resolved]
